FAERS Safety Report 4445763-4 (Version None)
Quarter: 2004Q3

REPORT INFORMATION
  Report Type: 
  Country: None (occurrence: None)
  Receive Date: 20040908
  Receipt Date: 20040908
  Transmission Date: 20050211
  Serious: Yes (Hospitalization)
  Sender: FDA-Public Use
  Company Number: None

PATIENT
  Age: 74 Year
  Sex: Male

DRUGS (13)
  1. DIGOXIN [Suspect]
     Indication: CARDIAC FAILURE CONGESTIVE
     Dosage: 0.125MG QD
     Dates: start: 19950701
  2. KCL TAB [Suspect]
     Indication: MINERAL SUPPLEMENTATION
     Dosage: 40 MG BID
     Dates: start: 20040301
  3. DILTIAZEM [Suspect]
     Indication: HYPERTENSION
     Dosage: 360 MG QD
     Dates: start: 20031201
  4. LORTAB [Concomitant]
  5. REMERON [Concomitant]
  6. LORAZEPAM [Concomitant]
  7. FUROSEMIDE [Concomitant]
  8. ISOSORBIDE [Concomitant]
  9. NITROGLYCERIN [Concomitant]
  10. OMEPRAZOLE [Concomitant]
  11. DIPHENHYDRAMINE HCL [Concomitant]
  12. ZOCOR [Concomitant]
  13. INSULIN [Concomitant]

REACTIONS (3)
  - BRADYCARDIA [None]
  - DIZZINESS [None]
  - HYPERKALAEMIA [None]
